FAERS Safety Report 6468678-9 (Version None)
Quarter: 2009Q4

REPORT INFORMATION
  Report Type: 
  Country: None (occurrence: None)
  Receive Date: 20091203
  Receipt Date: 20091123
  Transmission Date: 20100525
  Serious: Yes (Hospitalization)
  Sender: FDA-Public Use
  Company Number: US-AMGEN-US369887

PATIENT
  Sex: Male
  Weight: 75 kg

DRUGS (22)
  1. NPLATE [Suspect]
     Indication: IDIOPATHIC THROMBOCYTOPENIC PURPURA
     Dates: start: 20090615, end: 20091014
  2. PREDNISONE [Concomitant]
  3. ATENOLOL [Concomitant]
  4. PLATELETS [Concomitant]
  5. METFORMIN HCL [Concomitant]
  6. HYDROCHLOROTHIAZIDE [Concomitant]
  7. POTASSIUM CHLORIDE [Concomitant]
  8. AMLODIPINE [Concomitant]
  9. LISINOPRIL [Concomitant]
  10. LEVOTHYROXINE SODIUM [Concomitant]
  11. ROPINIROLE [Concomitant]
  12. CALCITRIOL [Concomitant]
  13. FERROUS SULFATE TAB [Concomitant]
  14. CALCIUM ACETATE [Concomitant]
  15. NEXIUM [Concomitant]
  16. SENOKOT [Concomitant]
  17. CLONAZEPAM [Concomitant]
  18. ALBUTEROL [Concomitant]
  19. TRAZODONE HCL [Concomitant]
  20. MORPHINE SULFATE [Concomitant]
  21. DIPHENHYDRAMINE HCL [Concomitant]
  22. NYSTATIN [Concomitant]
     Route: 048

REACTIONS (3)
  - CHEST PAIN [None]
  - DYSPNOEA [None]
  - PYREXIA [None]
